FAERS Safety Report 9415474 (Version 2)
Quarter: 2013Q3

REPORT INFORMATION
  Report Type: Report from Study
  Country: US (occurrence: US)
  Receive Date: 20130723
  Receipt Date: 20130801
  Transmission Date: 20140515
  Serious: Yes (Life-Threatening, Hospitalization)
  Sender: FDA-Public Use
  Company Number: US-ALLERGAN-1310812US

PATIENT
  Age: 44 Year
  Sex: Female

DRUGS (13)
  1. BOTULINUM TOXIN TYPE A - GENERAL (9060X) [Suspect]
     Indication: MIGRAINE
     Dosage: UNK, SINGLE
     Dates: start: 20130521, end: 20130521
  2. CYMBALTA [Suspect]
     Indication: BIPOLAR DISORDER
     Dosage: 60 MG, QD
     Route: 048
     Dates: start: 20130424, end: 20130704
  3. LEVOTHYROXINE [Concomitant]
     Indication: THYROID DISORDER
     Dosage: 50 ?G, QD
     Route: 048
     Dates: start: 201304
  4. DEPAKOTE [Concomitant]
     Indication: BIPOLAR DISORDER
     Dosage: 1000 MG, QHS
     Dates: start: 2006
  5. DEPO-PROVERA [Concomitant]
     Indication: BIPOLAR DISORDER
     Dosage: 400 MG, UNK
     Route: 030
     Dates: start: 2006
  6. TOPAMAX [Concomitant]
     Indication: MIGRAINE
     Dosage: 100 MG, BID
     Route: 048
     Dates: start: 201303
  7. REPLAX [Concomitant]
     Indication: MIGRAINE
     Dosage: 20 MG, PRN
     Route: 048
     Dates: start: 201303
  8. MELATONIN [Concomitant]
     Indication: INSOMNIA
     Dosage: 3 MG, QHS
     Dates: start: 201304
  9. TORADOL [Concomitant]
     Dosage: 30 MG, UNK
     Route: 042
  10. BENADRYL [Concomitant]
     Dosage: 25 MG, UNK
     Route: 042
  11. DILAUDED [Concomitant]
     Dosage: 1 MG, UNK
     Route: 042
  12. ZOFRAN [Concomitant]
     Dosage: 8 MG, UNK
     Route: 042
  13. MEDROL [Concomitant]
     Dosage: 4 MG, UNK
     Route: 048
     Dates: start: 20130517, end: 20130522

REACTIONS (1)
  - Suicidal ideation [Recovered/Resolved]
